FAERS Safety Report 8154808-X (Version None)
Quarter: 2012Q1

REPORT INFORMATION
  Report Type: 
  Country: None (occurrence: None)
  Receive Date: 20120221
  Receipt Date: 20120212
  Transmission Date: 20120608
  Serious: Yes (Other)
  Sender: FDA-Public Use
  Company Number: PHHY2012PL013018

PATIENT
  Sex: Female

DRUGS (7)
  1. METHYLPREDNISOLONE [Concomitant]
     Dosage: UNK UKN, UNK
  2. CYCLOSPORINE [Suspect]
     Indication: NEPHROTIC SYNDROME
  3. MYCOPHENOLATE MOFETIL [Concomitant]
     Dosage: UNK UKN, UNK
  4. ALKYLATING AGENTS [Concomitant]
     Dosage: UNK UKN, UNK
  5. STEROIDS NOS [Concomitant]
     Dosage: UNK UKN, UNK
  6. TACROLIMUS [Concomitant]
     Dosage: UNK UKN, UNK
  7. RITUXIMAB [Concomitant]
     Dosage: UNK UKN, UNK

REACTIONS (2)
  - DRUG INEFFECTIVE [None]
  - RENAL FAILURE CHRONIC [None]
